FAERS Safety Report 18907517 (Version 1)
Quarter: 2021Q1

REPORT INFORMATION
  Report Type: Spontaneous
  Country: US (occurrence: US)
  Receive Date: 20210218
  Receipt Date: 20210218
  Transmission Date: 20210420
  Serious: No
  Sender: FDA-Public Use
  Company Number: US-ASTRAZENECA-2021A037895

PATIENT
  Sex: Female
  Weight: 77.1 kg

DRUGS (1)
  1. IMFINZI [Suspect]
     Active Substance: DURVALUMAB
     Indication: LUNG NEOPLASM MALIGNANT
     Dosage: EVERY TWO WEEKS BY IV INFUSION.
     Route: 042

REACTIONS (3)
  - Intelligence increased [Not Recovered/Not Resolved]
  - Therapeutic response unexpected [Recovering/Resolving]
  - Hair growth abnormal [Not Recovered/Not Resolved]
